FAERS Safety Report 16944239 (Version 2)
Quarter: 2020Q2

REPORT INFORMATION
  Report Type: Report from Study
  Country: US (occurrence: US)
  Receive Date: 20191022
  Receipt Date: 20200507
  Transmission Date: 20200713
  Serious: Yes (Death, Hospitalization)
  Sender: FDA-Public Use
  Company Number: NVSC2019US010642

PATIENT
  Age: 64 Year
  Sex: Male
  Weight: 75.8 kg

DRUGS (1)
  1. LAMPRENE [Suspect]
     Active Substance: CLOFAZIMINE
     Indication: DISSEMINATED MYCOBACTERIUM AVIUM COMPLEX INFECTION
     Dosage: 100 MG, QD
     Route: 048
     Dates: start: 20150615

REACTIONS (11)
  - Respiratory failure [Unknown]
  - Death [Fatal]
  - Septic shock [Unknown]
  - Respiratory tract infection [Unknown]
  - Seizure [Unknown]
  - Agitation [Unknown]
  - Cerebrovascular accident [Unknown]
  - Pneumonia aspiration [Unknown]
  - Mental status changes [Unknown]
  - Encephalopathy [Unknown]
  - Pneumonia [Unknown]

NARRATIVE: CASE EVENT DATE: 20190824
